FAERS Safety Report 5028458-8 (Version None)
Quarter: 2006Q2

REPORT INFORMATION
  Report Type: 
  Country: None (occurrence: None)
  Receive Date: 20060617
  Receipt Date: 20060613
  Transmission Date: 20061013
  Serious: Yes (Death)
  Sender: FDA-Public Use
  Company Number: CA-GLAXOSMITHKLINE-A0609191A

PATIENT
  Age: 91 Year
  Sex: Male

DRUGS (22)
  1. VALTREX [Suspect]
     Indication: DRUG USE FOR UNKNOWN INDICATION
     Dosage: 2U PER DAY
     Route: 065
  2. LINEZOLID [Suspect]
     Indication: DRUG USE FOR UNKNOWN INDICATION
     Dosage: 600MG TWICE PER DAY
     Route: 048
  3. ACETAMINOPHEN [Concomitant]
  4. AMLODIPINE [Concomitant]
  5. ASAPHEN [Concomitant]
  6. ATIVAN [Concomitant]
  7. AZITHROMYCIN [Concomitant]
  8. BACITRACIN [Concomitant]
  9. BENYLIN [Concomitant]
  10. BIAXIN [Concomitant]
     Dosage: 500MG TWICE PER DAY
     Route: 048
  11. CODEINE [Concomitant]
  12. DETROL [Concomitant]
  13. LASIX [Concomitant]
  14. LOSEC [Concomitant]
  15. METOPROLOL TARTRATE [Concomitant]
  16. MONOPRIL [Concomitant]
  17. NITROGLYCERIN [Concomitant]
  18. PANTOPRAZOLE [Concomitant]
  19. PERCOCET [Concomitant]
  20. POTASSIUM CHLORIDE [Concomitant]
     Route: 042
  21. TYLENOL (CAPLET) [Concomitant]
  22. VANCOMYCIN [Concomitant]

REACTIONS (15)
  - ANAEMIA [None]
  - ANOREXIA [None]
  - ASTHENIA [None]
  - BLOOD BILIRUBIN INCREASED [None]
  - BLOOD LACTATE DEHYDROGENASE INCREASED [None]
  - BLOOD UREA INCREASED [None]
  - BODY TEMPERATURE DECREASED [None]
  - DIZZINESS [None]
  - FATIGUE [None]
  - HEPATIC ENZYME INCREASED [None]
  - HEPATITIS [None]
  - HYPOTENSION [None]
  - JAUNDICE [None]
  - NEUROPATHY PERIPHERAL [None]
  - TONGUE BLACK HAIRY [None]
